FAERS Safety Report 15308304 (Version 2)
Quarter: 2018Q4

REPORT INFORMATION
  Report Type: Other
  Country: US (occurrence: US)
  Receive Date: 20180822
  Receipt Date: 20180828
  Transmission Date: 20190204
  Serious: Yes (Other)
  Sender: FDA-Public Use
  Company Number: US-GUTHY-RENKER, LLC-2054090

PATIENT
  Sex: Female

DRUGS (2)
  1. MEANINGFUL BEAUTY CINDY CRAWFORD ANTIOXIDANT SPF 20 UVA/UVB [Suspect]
     Active Substance: AVOBENZONE\OCTINOXATE\OCTISALATE\OXYBENZONE
     Indication: PHOTON RADIATION THERAPY TO SKIN
     Dates: start: 20180315, end: 20180415
  2. VENTOLIN RESCUE INHALER, NEBULIZER TREATMENTS WITH ALBUTEROL. OTC ORAL [Concomitant]

REACTIONS (1)
  - Hypersensitivity [Recovered/Resolved]

NARRATIVE: CASE EVENT DATE: 20180315
